FAERS Safety Report 9642832 (Version 1)
Quarter: 2013Q4

REPORT INFORMATION
  Report Type: Spontaneous
  Country: VN (occurrence: VN)
  Receive Date: 20131024
  Receipt Date: 20131024
  Transmission Date: 20140711
  Serious: Yes (Death)
  Sender: FDA-Public Use
  Company Number: VN-B.I. PHARMACEUTICALS,INC./RIDGEFIELD-2013-BI-32534VN

PATIENT
  Age: 85 Year
  Sex: Female

DRUGS (9)
  1. PRADAXA [Suspect]
     Indication: ATRIAL FIBRILLATION
     Dosage: 220 MG
     Dates: end: 20131011
  2. PRADAXA [Suspect]
     Indication: CEREBROVASCULAR ACCIDENT PROPHYLAXIS
  3. PLAVIX (CLOPIDOGREL) [Concomitant]
     Indication: MYOCARDIAL INFARCTION
     Dosage: ROUTE: THROUGH GASTRIC TUBE
  4. PLENDIL (FELODIPINE) [Concomitant]
     Indication: HYPERTENSION
     Dosage: ROUTE: THROUGH GASTRIC TUBE
  5. PLENDIL (FELODIPINE) [Concomitant]
     Indication: CORONARY ARTERY DISEASE
  6. MICARDIS (TELMISARTAN) [Concomitant]
     Indication: HYPERTENSION
     Dosage: ROUTE: THROUGH GASTRIC TUBE
  7. SALBUTAMOL [Concomitant]
     Dosage: ROUTE: THROUGH GASTRIC TUBE
  8. FENOBARBITAN [Concomitant]
     Dosage: ROUTE: THROUGH GASTRIC TUBE
  9. DOMPERIDON [Concomitant]
     Indication: ANTIEMETIC SUPPORTIVE CARE
     Dosage: ROUTE: THROUGH GASTRIC TUBE

REACTIONS (1)
  - Gastrointestinal haemorrhage [Fatal]
